FAERS Safety Report 8235667-3 (Version None)
Quarter: 2012Q1

REPORT INFORMATION
  Report Type: 
  Country: None (occurrence: None)
  Receive Date: 20120323
  Receipt Date: 20120319
  Transmission Date: 20120608
  Serious: Yes (Other)
  Sender: FDA-Public Use
  Company Number: ADR-2011-11641

PATIENT
  Sex: Male

DRUGS (2)
  1. LIORESAL [Suspect]
     Indication: MUSCLE SPASTICITY
     Dosage: SEE IMAGE
  2. LIORESAL [Suspect]
     Indication: CEREBRAL PALSY
     Dosage: SEE IMAGE

REACTIONS (5)
  - DRUG LEVEL DECREASED [None]
  - HYPOTHERMIA [None]
  - HYPOTENSION [None]
  - ENDOCRINE DISORDER [None]
  - BRADYCARDIA [None]
